FAERS Safety Report 4572565-0 (Version None)
Quarter: 2005Q1

REPORT INFORMATION
  Report Type: 
  Country: None (occurrence: None)
  Receive Date: 20050208
  Receipt Date: 20050127
  Transmission Date: 20050727
  Serious: Yes (Death, Hospitalization)
  Sender: FDA-Public Use
  Company Number: US-JNJFOC-20040100203

PATIENT
  Sex: Female

DRUGS (19)
  1. INFLIXIMAB [Suspect]
     Route: 042
     Dates: start: 20020110, end: 20030101
  2. INFLIXIMAB [Suspect]
     Indication: RHEUMATOID ARTHRITIS
     Route: 042
     Dates: start: 20020110, end: 20030101
  3. PREDNISONE [Concomitant]
  4. PREVACID [Concomitant]
  5. LORTAB [Concomitant]
     Route: 049
  6. LORTAB [Concomitant]
     Route: 049
  7. FOLIC ACID [Concomitant]
  8. MOBIC [Concomitant]
  9. FOSAMAX [Concomitant]
  10. OSCAL + D [Concomitant]
  11. OSCAL + D [Concomitant]
  12. MULTI-VITAMINS [Concomitant]
  13. MULTI-VITAMINS [Concomitant]
  14. MULTI-VITAMINS [Concomitant]
  15. MULTI-VITAMINS [Concomitant]
  16. MULTI-VITAMINS [Concomitant]
  17. MULTI-VITAMINS [Concomitant]
  18. MULTI-VITAMINS [Concomitant]
  19. MULTI-VITAMINS [Concomitant]

REACTIONS (2)
  - LUNG INFILTRATION [None]
  - PULMONARY HYPERTENSION [None]
